FAERS Safety Report 4824835-6 (Version None)
Quarter: 2005Q4

REPORT INFORMATION
  Report Type: 
  Country: None (occurrence: None)
  Receive Date: 20051108
  Receipt Date: 20051028
  Transmission Date: 20060501
  Serious: Yes (Death)
  Sender: FDA-Public Use
  Company Number: 12751

PATIENT
  Age: 69 Year
  Sex: Male

DRUGS (13)
  1. AMIODARONE [Suspect]
     Dosage: 200 MG PO
     Route: 048
     Dates: start: 20050201, end: 20050803
  2. SALAZOPYRIN [Concomitant]
  3. SERETIDE [Concomitant]
  4. ASPIRIN [Concomitant]
  5. DILTIAZEM HCL [Concomitant]
  6. SIMVASTATIN [Concomitant]
  7. LEVOTHYROXINE SODIUM [Concomitant]
  8. DESLORATADINE [Concomitant]
  9. LANSOPRAZOLE [Concomitant]
  10. MONOMAX [Concomitant]
  11. NAPROXEN [Concomitant]
  12. WARFARIN [Concomitant]
  13. ACTONEL [Concomitant]

REACTIONS (1)
  - PNEUMONITIS [None]
